FAERS Safety Report 4875192-0 (Version None)
Quarter: 2006Q1

REPORT INFORMATION
  Report Type: 
  Country: None (occurrence: None)
  Receive Date: 20060109
  Receipt Date: 20050324
  Transmission Date: 20060701
  Serious: Yes (Hospitalization, Other)
  Sender: FDA-Public Use
  Company Number: US-MERCK-0503USA04620

PATIENT
  Age: 66 Year
  Sex: Male
  Weight: 75 kg

DRUGS (2)
  1. VIOXX [Suspect]
     Indication: FACET JOINT SYNDROME
     Route: 065
     Dates: start: 19991201, end: 20040501
  2. VIOXX [Suspect]
     Indication: BACK PAIN
     Route: 065
     Dates: start: 19991201, end: 20040501

REACTIONS (10)
  - CEREBROVASCULAR ACCIDENT [None]
  - CHRONIC OBSTRUCTIVE PULMONARY DISEASE [None]
  - CORONARY ARTERY DISEASE [None]
  - DEPRESSION [None]
  - DIABETES MELLITUS [None]
  - HYPERTENSION [None]
  - HYPOTHYROIDISM [None]
  - MENTAL STATUS CHANGES [None]
  - MYOCARDIAL INFARCTION [None]
  - SPINAL CORD DISORDER [None]
